FAERS Safety Report 8965503 (Version 1)
Quarter: 2012Q4

REPORT INFORMATION
  Report Type: Spontaneous
  Country: US (occurrence: None)
  Receive Date: 20121205
  Receipt Date: 20121205
  Transmission Date: 20130627
  Serious: Yes (Other)
  Sender: FDA-Public Use
  Company Number: FK201203577

PATIENT
  Age: 42 Year
  Sex: Female

DRUGS (4)
  1. ONDANSETRON [Suspect]
     Dosage: Unknown, Single dose, Unknown
  2. ADDERALL (OBETROL /01345401/) [Concomitant]
  3. CITALOPRAM (CITALOPRAM) [Concomitant]
  4. QUETIAPINE (QUETIAPINE) [Concomitant]

REACTIONS (3)
  - Serotonin syndrome [None]
  - Blood pressure fluctuation [None]
  - No therapeutic response [None]
